FAERS Safety Report 9015808 (Version 2)
Quarter: 2013Q1

REPORT INFORMATION
  Report Type: Spontaneous
  Country: US (occurrence: US)
  Receive Date: 20130102
  Receipt Date: 20130225
  Transmission Date: 20140127
  Serious: Yes (Hospitalization)
  Sender: FDA-Public Use
  Company Number: 2012SP005071

PATIENT
  Age: 55 Year
  Sex: Male
  Weight: 120.64 kg

DRUGS (21)
  1. FLUOROURACIL [Suspect]
     Indication: COLORECTAL CANCER METASTATIC
     Route: 040
     Dates: start: 20120321, end: 20121127
  2. FLUOROURACIL [Suspect]
     Indication: COLORECTAL CANCER METASTATIC
     Route: 042
     Dates: start: 20120321, end: 20121127
  3. IRINOTECAN [Suspect]
     Indication: COLORECTAL CANCER METASTATIC
     Route: 042
     Dates: start: 20120321, end: 20121127
  4. FOLINIC ACID [Suspect]
     Indication: COLORECTAL CANCER METASTATIC
     Route: 042
     Dates: start: 20120321, end: 20121127
  5. ACETYLSALICYLIC ACID [Concomitant]
     Indication: CARDIOVASCULAR EVENT PROPHYLAXIS
     Dates: start: 20120110
  6. ESTRADIOL [Concomitant]
     Indication: DYSPHORIA
     Dates: start: 20120803
  7. GABAPENTIN [Concomitant]
     Indication: NEURALGIA
     Dates: start: 20120814
  8. MEDROXYPROGESTERONE ACETATE [Concomitant]
     Indication: DYSPHORIA
     Dates: start: 20120803
  9. METFORMIN [Concomitant]
     Indication: DIABETES MELLITUS
     Dates: start: 20120323
  10. MORPHINE SULFATE [Concomitant]
     Indication: PAIN
     Dates: start: 20121211, end: 20130107
  11. OMEPRAZOLE [Concomitant]
     Indication: GASTROOESOPHAGEAL REFLUX DISEASE
     Dates: start: 20120918
  12. DOCUSATE [Concomitant]
     Indication: CONSTIPATION
     Dates: start: 20120501
  13. ONDANSETRON [Concomitant]
     Indication: NAUSEA
     Dates: start: 20110211
  14. PROCHLORPERAZINE [Concomitant]
     Indication: NAUSEA
     Dates: start: 20100611
  15. SIMETHICONE [Concomitant]
     Indication: FLATULENCE
     Dates: start: 20120911
  16. SIMVASTATIN [Concomitant]
     Indication: HYPERCHOLESTEROLAEMIA
     Dates: start: 20120110
  17. TRAZODONE [Concomitant]
     Indication: INSOMNIA
     Dates: start: 20110801
  18. ATENOLOL [Concomitant]
     Indication: HYPERTENSION
     Dates: start: 20120801, end: 20121206
  19. SPIRONOLACTONE [Concomitant]
     Indication: POLYURIA
     Dates: start: 20120803, end: 20121206
  20. FUROSEMIDE [Concomitant]
     Indication: OEDEMA
     Dates: start: 20120308, end: 20121206
  21. PANTOPRAZOLE [Concomitant]
     Indication: GASTROOESOPHAGEAL REFLUX DISEASE
     Dates: start: 20120914

REACTIONS (8)
  - Syncope [Recovered/Resolved]
  - Nausea [Unknown]
  - Loss of consciousness [Recovered/Resolved]
  - Hypophagia [Unknown]
  - Fungal skin infection [Unknown]
  - Hypotension [Unknown]
  - Dizziness [Recovered/Resolved]
  - Constipation [None]
